FAERS Safety Report 9099354 (Version 1)
Quarter: 2013Q1

REPORT INFORMATION
  Report Type: Spontaneous
  Country: US (occurrence: US)
  Receive Date: 20130214
  Receipt Date: 20130214
  Transmission Date: 20140127
  Serious: No
  Sender: FDA-Public Use
  Company Number: US-COVIDIEN/TYCO HEALTHCARE/MALLINCKRODT-T201204287

PATIENT
  Sex: Male

DRUGS (4)
  1. FENTANYL TRANSDERMAL SYSTEM [Suspect]
     Indication: BACK PAIN
     Dosage: 100 UG/HR, 2 FTS Q 48 HOURS
     Dates: start: 201210, end: 20121203
  2. NORCO [Concomitant]
     Indication: BREAKTHROUGH PAIN
     Dosage: 10/325 MG PRN
     Route: 048
  3. SKELAXIN                           /00611501/ [Concomitant]
     Indication: BREAKTHROUGH PAIN
     Dosage: 800 MG, Q8 HOURS
     Route: 048
  4. FENTANYL [Concomitant]
     Dosage: UNK
     Route: 062
     Dates: end: 201210

REACTIONS (2)
  - Mobility decreased [Recovered/Resolved]
  - Drug ineffective [Recovered/Resolved]
